FAERS Safety Report 18902515 (Version 1)
Quarter: 2021Q1

REPORT INFORMATION
  Report Type: Spontaneous
  Country: JP (occurrence: JP)
  Receive Date: 20210217
  Receipt Date: 20210217
  Transmission Date: 20210420
  Serious: Yes (Other)
  Sender: FDA-Public Use
  Company Number: JP-FERRINGPH-2021FE00892

PATIENT
  Age: 32 Year
  Sex: Female

DRUGS (2)
  1. HMG FERRING [Suspect]
     Active Substance: MENOTROPINS
     Indication: INFERTILITY
     Dosage: UNK
     Route: 065
  2. CETROTIDE [Concomitant]
     Active Substance: CETRORELIX ACETATE
     Indication: PRODUCT USED FOR UNKNOWN INDICATION
     Route: 065
     Dates: start: 20210203

REACTIONS (2)
  - Breast cancer [Unknown]
  - Contraindicated product administered [Unknown]

NARRATIVE: CASE EVENT DATE: 20210130
